FAERS Safety Report 22217673 (Version 2)
Quarter: 2023Q2

REPORT INFORMATION
  Report Type: Spontaneous
  Country: GB (occurrence: GB)
  Receive Date: 20230417
  Receipt Date: 20230515
  Transmission Date: 20230721
  Serious: Yes (Other)
  Sender: FDA-Public Use
  Company Number: GB-SAMSUNG BIOEPIS-SB-2023-09010

PATIENT
  Age: 67 Year
  Sex: Female

DRUGS (2)
  1. LEFLUNOMIDE [Suspect]
     Active Substance: LEFLUNOMIDE
     Indication: Product used for unknown indication
     Dosage: UNKNOWN
     Route: 065
  2. ETANERCEPT [Suspect]
     Active Substance: ETANERCEPT
     Indication: Rheumatoid arthritis
     Dosage: 50 MILLIGRAM, EVERY WEEK
     Route: 058
     Dates: start: 20230130

REACTIONS (10)
  - Pulmonary embolism [Unknown]
  - Injection site pain [Unknown]
  - Constipation [Unknown]
  - Arthralgia [Unknown]
  - Mobility decreased [Unknown]
  - Walking aid user [Unknown]
  - Exposure via skin contact [Unknown]
  - Drug ineffective [Unknown]
  - Accidental exposure to product [Unknown]
  - Wrong technique in product usage process [Unknown]

NARRATIVE: CASE EVENT DATE: 20230213
